FAERS Safety Report 10409607 (Version 1)
Quarter: 2014Q3

REPORT INFORMATION
  Report Type: Report from Study
  Country: GB (occurrence: GB)
  Receive Date: 20140826
  Receipt Date: 20140826
  Transmission Date: 20150326
  Serious: Yes (Hospitalization)
  Sender: FDA-Public Use
  Company Number: GB-SHIRE-GB201405315

PATIENT
  Age: 13 Year
  Sex: Male

DRUGS (3)
  1. IDURSULFASE [Suspect]
     Active Substance: IDURSULFASE
     Indication: MUCOPOLYSACCHARIDOSIS II
     Dosage: 0.5 MG/KG, 1X/WEEK
     Route: 041
     Dates: start: 20090304
  2. IDURSULFASE [Suspect]
     Active Substance: IDURSULFASE
     Dosage: 0.59 MG/KG, 1X/WEEK(ALTERNATING WITH 0.44 MG/KG)
     Route: 041
     Dates: start: 20070419
  3. IDURSULFASE [Suspect]
     Active Substance: IDURSULFASE
     Dosage: (ALTERNATING WITH 0.59)0.44 MG/KG, 1X/WEEK
     Route: 041
     Dates: start: 20070419

REACTIONS (3)
  - Surgery [Unknown]
  - Gastrointestinal pain [Unknown]
  - Infection [Unknown]

NARRATIVE: CASE EVENT DATE: 20090813
